FAERS Safety Report 10019681 (Version 1)
Quarter: 2014Q1

REPORT INFORMATION
  Report Type: Spontaneous
  Country: FR (occurrence: FR)
  Receive Date: 20140318
  Receipt Date: 20140318
  Transmission Date: 20141002
  Serious: Yes (Hospitalization)
  Sender: FDA-Public Use
  Company Number: PHHY2014FR031166

PATIENT
  Age: 79 Year
  Sex: Female

DRUGS (15)
  1. METHOTREXATE SANDOZ [Suspect]
     Dosage: 15 MG, QW
     Route: 048
     Dates: end: 20071027
  2. ATENOLOL SANDOZ [Suspect]
     Dosage: 1 DF, QD
     Route: 048
     Dates: end: 20071028
  3. TRINIPATCH [Suspect]
     Dosage: 1 DF, QD
     Route: 062
     Dates: end: 20071028
  4. KARDEGIC [Concomitant]
     Dosage: 1 DF, QD
     Route: 048
  5. CORTANCYL [Concomitant]
     Dosage: 8 MG, QD
     Route: 048
  6. ZOLOFT [Concomitant]
     Dosage: 1 DF, QD
     Route: 048
  7. EUPANTOL [Concomitant]
     Dosage: 1 DF, QD
     Route: 048
  8. XANAX [Concomitant]
     Dosage: 1 DF, QD
     Route: 048
  9. STABLON [Concomitant]
     Dosage: 3 DF, QD
     Route: 048
  10. CACIT VITAMINE D3 [Concomitant]
     Dosage: 1 DF, QD
     Route: 048
  11. FOSAMAX [Concomitant]
     Dosage: 1 DF, QW
     Route: 048
  12. IMOVANE [Concomitant]
     Dosage: 0.5 DF, QD
     Route: 048
  13. PARACETAMOL [Concomitant]
     Dosage: 3 DF, QD
     Route: 048
  14. CORDARONE [Concomitant]
     Indication: ATRIAL FIBRILLATION
     Dosage: 1 DF, QD
     Route: 048
  15. UNICORDIUM [Concomitant]
     Dosage: 1 DF, QD
     Route: 048

REACTIONS (1)
  - Interstitial lung disease [Unknown]
